FAERS Safety Report 6398684-4 (Version None)
Quarter: 2009Q4

REPORT INFORMATION
  Report Type: 
  Country: None (occurrence: None)
  Receive Date: 20091013
  Receipt Date: 20091001
  Transmission Date: 20100525
  Serious: Yes (Life-Threatening)
  Sender: FDA-Public Use
  Company Number: CH-JNJFOC-20091000660

PATIENT
  Age: 61 Year
  Sex: Male

DRUGS (1)
  1. REMICADE [Suspect]
     Indication: RASH PAPULAR
     Dosage: ABOUT 20 CYCLES TOTAL
     Route: 042
     Dates: start: 20050101

REACTIONS (1)
  - LUNG CANCER METASTATIC [None]
